FAERS Safety Report 9299350 (Version 2)
Quarter: 2013Q3

REPORT INFORMATION
  Report Type: Spontaneous
  Country: AU (occurrence: AU)
  Receive Date: 20130520
  Receipt Date: 20130716
  Transmission Date: 20140515
  Serious: Yes (Death)
  Sender: FDA-Public Use
  Company Number: AU-B.I. PHARMACEUTICALS,INC./RIDGEFIELD-2013-AU-00575AU

PATIENT
  Sex: Male

DRUGS (6)
  1. PRADAXA [Suspect]
     Indication: ATRIAL FIBRILLATION
     Dosage: 110 MG
  2. LASIX [Concomitant]
     Dosage: 40 MG
  3. LIPITOR [Concomitant]
     Dosage: 20 MG
  4. SERETIDE ACUHALER [Concomitant]
     Dosage: 500/50
  5. SPIRIVA [Concomitant]
  6. TRITACE [Concomitant]
     Dosage: 10 MG

REACTIONS (2)
  - Respiratory failure [Fatal]
  - Off label use [Unknown]
